FAERS Safety Report 15407632 (Version 6)
Quarter: 2021Q3

REPORT INFORMATION
  Report Type: Spontaneous
  Country: MY (occurrence: MY)
  Receive Date: 20180920
  Receipt Date: 20210907
  Transmission Date: 20211014
  Serious: Yes (Death, Other)
  Sender: FDA-Public Use
  Company Number: MY-PFIZER INC-2018379596

PATIENT
  Age: 11 Month
  Sex: Male
  Weight: 8.6 kg

DRUGS (6)
  1. TAMIFLU [Concomitant]
     Active Substance: OSELTAMIVIR PHOSPHATE
     Dosage: 120 MG
     Dates: start: 20160709, end: 20160715
  2. ZITHROMAX [Suspect]
     Active Substance: AZITHROMYCIN DIHYDRATE
     Indication: PNEUMONIA
     Dosage: 130 MG, SINGLE (GIVEN OVER LESS THAN 60 MINUTES)
     Route: 042
     Dates: start: 20160713, end: 20160713
  3. PARACETAMOL [Concomitant]
     Active Substance: ACETAMINOPHEN
     Dosage: UNK
     Dates: start: 201607
  4. HYDROCORTISONE. [Concomitant]
     Active Substance: HYDROCORTISONE
     Dosage: 35 MG, 2X/DAY (EVERY 6 HOURS TWICE A DAY)
     Dates: start: 20160709, end: 20160715
  5. ZITHROMAX [Suspect]
     Active Substance: AZITHROMYCIN DIHYDRATE
     Dosage: 45 MG, DAILY (GIVEN OVER LESS THAN 60 MINUTES)
     Route: 042
     Dates: start: 20160714, end: 20160715
  6. ROCEPHIN [Suspect]
     Active Substance: CEFTRIAXONE SODIUM
     Dosage: 250 MG, DAILY
     Route: 042
     Dates: start: 20160709, end: 20160715

REACTIONS (7)
  - Prescribed overdose [Fatal]
  - Crying [Unknown]
  - Hepatomegaly [Unknown]
  - Sudden death [Fatal]
  - Seizure [Unknown]
  - Off label use [Fatal]
  - Product use issue [Fatal]

NARRATIVE: CASE EVENT DATE: 201607
